FAERS Safety Report 9467369 (Version 2)
Quarter: 2013Q3

REPORT INFORMATION
  Report Type: Spontaneous
  Country: IT (occurrence: IT)
  Receive Date: 20130821
  Receipt Date: 20130916
  Transmission Date: 20140515
  Serious: Yes (Other)
  Sender: FDA-Public Use
  Company Number: IT-BRISTOL-MYERS SQUIBB COMPANY-19205335

PATIENT
  Age: 73 Year
  Sex: Male

DRUGS (2)
  1. MITOMYCIN-C [Suspect]
     Dosage: INJ
     Route: 042
     Dates: start: 20120709, end: 20120806
  2. 5-FLUOROURACIL [Suspect]
     Dosage: REDUCED 50%:2000 MG/SQ M/ MONTH:6AUG13?INJ
     Route: 042
     Dates: start: 20120709

REACTIONS (3)
  - Febrile neutropenia [Recovered/Resolved]
  - Thrombocytopenia [Recovered/Resolved]
  - Haemoglobin increased [Recovered/Resolved]
